FAERS Safety Report 4596659-9 (Version None)
Quarter: 2005Q1

REPORT INFORMATION
  Report Type: 
  Country: None (occurrence: None)
  Receive Date: 20050228
  Receipt Date: 20040510
  Transmission Date: 20050727
  Serious: Yes (Hospitalization)
  Sender: FDA-Public Use
  Company Number: 7992

PATIENT
  Age: 67 Year
  Sex: Male

DRUGS (1)
  1. METHOTREXATE [Suspect]
     Indication: PSORIASIS
     Dosage: 12.5 MG WEEKLY/75 MG TOTAL

REACTIONS (10)
  - BLISTER [None]
  - HAEMATOCRIT DECREASED [None]
  - MOUTH ULCERATION [None]
  - MYALGIA [None]
  - PAIN [None]
  - PLATELET COUNT DECREASED [None]
  - PSORIASIS [None]
  - SKIN INFECTION [None]
  - SKIN ULCER [None]
  - WHITE BLOOD CELL COUNT DECREASED [None]
